FAERS Safety Report 5947645-5 (Version None)
Quarter: 2008Q4

REPORT INFORMATION
  Report Type: 
  Country: None (occurrence: None)
  Receive Date: 20081107
  Receipt Date: 20081031
  Transmission Date: 20090506
  Serious: Yes (Other)
  Sender: FDA-Public Use
  Company Number: 08-001755

PATIENT
  Age: 15 Month
  Sex: Female

DRUGS (18)
  1. ERYC [Suspect]
     Dosage: 2.5ML, BID,
  2. MICONAZOLE [Suspect]
     Indication: FUNGAL INFECTION
     Dosage: 2.5 ML, BID, ORAL
     Route: 048
     Dates: start: 20080919
  3. MICONAZOLE [Suspect]
     Indication: IMMUNOSUPPRESSION
     Dosage: 2.5 ML, BID, ORAL
     Route: 048
     Dates: start: 20080919
  4. TACROLIMUS [Suspect]
     Indication: IMMUNOSUPPRESSION
     Dosage: 2.5ML, BID, ORAL
     Route: 048
     Dates: start: 20080803
  5. ACYCLOVIR [Concomitant]
  6. AMPHOTERICIN B [Concomitant]
  7. ASPIRIN /00002701/ (ACETYLSALICYLI ACID) [Concomitant]
  8. CODEINE (CODEINE) [Concomitant]
  9. COLISTIN (COLISTIN) [Concomitant]
  10. CO-TRIMOXAZOLE (CO-TRIMOXAZOLE) [Concomitant]
  11. DIPYRIDAMOLE [Concomitant]
  12. GENTAMICIN [Concomitant]
  13. MAGNESIUM GLYCEROPHOSPHATE (MAGNESIUM GLYCEROPHOSPHATE) [Concomitant]
  14. MYCOPHENOLATE MOFETIL [Concomitant]
  15. OMEPRAZOLE [Concomitant]
  16. PREDNISONE [Concomitant]
  17. SODIUM BICARBONATE IN PLASTIC CONTAINER [Concomitant]
  18. URSODIOL [Concomitant]

REACTIONS (2)
  - DRUG INTERACTION [None]
  - IMMUNOSUPPRESSANT DRUG LEVEL INCREASED [None]
